FAERS Safety Report 7865964-2 (Version None)
Quarter: 2011Q4

REPORT INFORMATION
  Report Type: 
  Country: None (occurrence: None)
  Receive Date: 20111028
  Receipt Date: 20110329
  Transmission Date: 20120403
  Serious: No
  Sender: FDA-Public Use
  Company Number: US-GLAXOSMITHKLINE-A0920443A

PATIENT
  Age: 70 Year
  Sex: Female

DRUGS (7)
  1. FISH OIL [Concomitant]
  2. GLUCOSAMINE [Concomitant]
  3. DILTIAZEM HCL [Concomitant]
  4. VITAMIN TAB [Concomitant]
  5. SIMVASTATIN [Concomitant]
  6. ASPIRIN [Concomitant]
  7. ADVAIR DISKUS 100/50 [Suspect]
     Indication: CHRONIC OBSTRUCTIVE PULMONARY DISEASE
     Dosage: 1PUFF TWICE PER DAY
     Route: 055
     Dates: start: 20110201

REACTIONS (1)
  - DRY MOUTH [None]
